FAERS Safety Report 4758657-1 (Version None)
Quarter: 2005Q3

REPORT INFORMATION
  Report Type: 
  Country: None (occurrence: None)
  Receive Date: 20050901
  Receipt Date: 20050823
  Transmission Date: 20060218
  Serious: Yes (Other)
  Sender: FDA-Public Use
  Company Number: US-AMGEN-PRA147660

PATIENT
  Sex: Female

DRUGS (10)
  1. DARBEPOETIN ALFA [Suspect]
     Indication: MYELODYSPLASTIC SYNDROME
     Route: 058
     Dates: start: 20050513
  2. HYZAAR [Concomitant]
  3. PLAVIX [Concomitant]
  4. ASPIRIN [Concomitant]
  5. OSCAL [Concomitant]
  6. ATENOLOL [Concomitant]
  7. ZOCOR [Concomitant]
  8. MINITRAN [Concomitant]
  9. MULTIVITAMIN [Concomitant]
  10. MIACALCIN [Concomitant]

REACTIONS (2)
  - HAEMOGLOBIN DECREASED [None]
  - HYPERTENSION [None]
